FAERS Safety Report 12562173 (Version 1)
Quarter: 2016Q3

REPORT INFORMATION
  Report Type: Report from Study
  Country: BR (occurrence: BR)
  Receive Date: 20160715
  Receipt Date: 20160715
  Transmission Date: 20161109
  Serious: Yes (Death, Other)
  Sender: FDA-Public Use
  Company Number: ALCN2016BR004847

PATIENT
  Sex: Female
  Weight: 37 kg

DRUGS (1)
  1. VITALUX PLUS [Suspect]
     Active Substance: VITAMINS
     Indication: ROUTINE HEALTH MAINTENANCE
     Dosage: 1 UNK, QD
     Route: 048

REACTIONS (3)
  - Gastric haemorrhage [Fatal]
  - Gastric disorder [Fatal]
  - Death [Fatal]
